FAERS Safety Report 23378510 (Version 1)
Quarter: 2024Q1

REPORT INFORMATION
  Report Type: Spontaneous
  Country: FR (occurrence: FR)
  Receive Date: 20240108
  Receipt Date: 20240108
  Transmission Date: 20240410
  Serious: Yes (Hospitalization)
  Sender: FDA-Public Use
  Company Number: None

PATIENT
  Age: 51 Year
  Sex: Male
  Weight: 50.7 kg

DRUGS (9)
  1. PEMETREXED [Suspect]
     Active Substance: PEMETREXED
     Indication: Lung adenocarcinoma stage IV
     Dates: start: 202207, end: 20230814
  2. ESOMEPRAZOLE [Suspect]
     Active Substance: ESOMEPRAZOLE
     Indication: Peptic ulcer
     Dosage: ROUTE OF ADMIN: ORAL
     Dates: end: 20230928
  3. KARDEGIC [Suspect]
     Active Substance: ASPIRIN DL-LYSINE
     Indication: Peripheral arterial occlusive disease
     Dosage: ROUTE OF ADMIN: ORAL
     Dates: end: 20230915
  4. KEYTRUDA [Suspect]
     Active Substance: PEMBROLIZUMAB
     Indication: Lung adenocarcinoma stage IV
     Dosage: ROUTE OF ADMIN: INTRAVENOUS
     Dates: start: 202207, end: 20230814
  5. KEYTRUDA [Suspect]
     Active Substance: PEMBROLIZUMAB
     Dosage: ROUTE OF ADMIN: INTRAVENOUS
     Dates: start: 20231010
  6. ATORVASTATIN [Concomitant]
     Active Substance: ATORVASTATIN
     Indication: Dyslipidaemia
     Dosage: IN THE EVENING?ROUTE OF ADMIN: ORAL
  7. TRUVADA 200 mg/245 mg, film-coated tablet [Concomitant]
     Indication: HIV infection
  8. INTELENCE [Concomitant]
     Active Substance: ETRAVIRINE
     Indication: HIV infection
     Dosage: ROUTE OF ADMIN: ORAL
  9. FLUOXETINE HYDROCHLORIDE [Concomitant]
     Active Substance: FLUOXETINE HYDROCHLORIDE
     Indication: Depression
     Dosage: IN THE MORNING?ROUTE OF ADMIN: ORAL

REACTIONS (1)
  - Acute kidney injury [Recovering/Resolving]

NARRATIVE: CASE EVENT DATE: 20230801
